FAERS Safety Report 10208945 (Version 3)
Quarter: 2014Q2

REPORT INFORMATION
  Report Type: Spontaneous
  Country: GR (occurrence: GR)
  Receive Date: 20140530
  Receipt Date: 20140603
  Transmission Date: 20141212
  Serious: No
  Sender: FDA-Public Use
  Company Number: GR-ELI_LILLY_AND_COMPANY-GR201310002436

PATIENT
  Age: 30 Year
  Sex: Female

DRUGS (4)
  1. LADOSE [Suspect]
     Indication: DEPRESSION
     Dosage: 50 MG, QD
     Route: 048
     Dates: start: 201306
  2. CALCIUM [Concomitant]
     Indication: PREGNANCY
  3. MAGNESIUM [Concomitant]
     Indication: PREGNANCY
  4. IRON [Concomitant]
     Indication: PREGNANCY

REACTIONS (1)
  - Maternal exposure during pregnancy [Recovered/Resolved]
